FAERS Safety Report 24397453 (Version 2)
Quarter: 2024Q4

REPORT INFORMATION
  Report Type: Spontaneous
  Country: NZ (occurrence: NZ)
  Receive Date: 20241004
  Receipt Date: 20241014
  Transmission Date: 20250115
  Serious: Yes (Death)
  Sender: MYLAN
  Company Number: NZ-MYLANLABS-2024M1044851

PATIENT
  Age: 86 Year
  Sex: Male
  Weight: 99.8 kg

DRUGS (14)
  1. CLOZARIL [Suspect]
     Active Substance: CLOZAPINE
     Indication: Schizophrenia
     Dosage: 25 MILLIGRAM, BID (50MG ONCE DAILY)
     Route: 048
     Dates: start: 20091221, end: 20241001
  2. CLOZARIL [Suspect]
     Active Substance: CLOZAPINE
     Indication: Dementia with Lewy bodies
  3. BENSERAZIDE HYDROCHLORIDE\LEVODOPA [Concomitant]
     Active Substance: BENSERAZIDE HYDROCHLORIDE\LEVODOPA
     Indication: Parkinsonism
     Dosage: 2 DOSAGE FORM, QID
     Route: 048
  4. OMEPRAZOLE [Concomitant]
     Active Substance: OMEPRAZOLE
     Indication: Gastrooesophageal reflux disease
     Dosage: 20 MILLIGRAM, AM (MANE)
     Route: 048
     Dates: end: 20241001
  5. FLUOXETINE [Concomitant]
     Active Substance: FLUOXETINE HYDROCHLORIDE
     Indication: Depression
     Dosage: 60 MILLIGRAM, PM (NOCTE)
     Route: 048
     Dates: end: 20241001
  6. BACLOFEN [Concomitant]
     Active Substance: BACLOFEN
     Dosage: 5 MILLIGRAM, BID
     Route: 048
     Dates: end: 20241001
  7. PRAMIPEXOLE [Concomitant]
     Active Substance: PRAMIPEXOLE\PRAMIPEXOLE DIHYDROCHLORIDE
     Indication: Parkinsonism
     Dosage: 250 MILLIGRAM (3 MANE, 2 MIDI/NOCTE)
     Route: 048
     Dates: end: 20241001
  8. ACETAMINOPHEN [Concomitant]
     Active Substance: ACETAMINOPHEN
     Dosage: 1 GRAM, QID
     Route: 048
     Dates: end: 20241001
  9. LORATADINE [Concomitant]
     Active Substance: LORATADINE
     Dosage: 10 MILLIGRAM, BID
     Route: 048
     Dates: end: 20241001
  10. FUROSEMIDE [Concomitant]
     Active Substance: FUROSEMIDE
     Indication: Cardiac failure
     Dosage: 120 MILLIGRAM, AM (MANE)
     Route: 048
     Dates: end: 20241001
  11. COLOXYL WITH SENNA [Concomitant]
     Indication: Constipation
     Dosage: 2 DOSAGE FORM, BID
     Route: 048
     Dates: end: 20241001
  12. MIDODRINE [Concomitant]
     Active Substance: MIDODRINE
     Dosage: 2.5 MILLIGRAM, PM (NOCTE)
     Route: 048
     Dates: end: 20241001
  13. DONEPEZIL [Concomitant]
     Active Substance: DONEPEZIL
     Dosage: 5 MILLIGRAM, PM (NOCTE)
     Route: 048
     Dates: end: 20241001
  14. CHOLECALCIFEROL [Concomitant]
     Active Substance: CHOLECALCIFEROL
     Indication: Osteoporosis
     Dosage: 1.25 MILLIGRAM (1.25MG MONTHLY)
     Route: 048
     Dates: end: 20241001

REACTIONS (6)
  - Cardiac failure [Fatal]
  - Pneumonia [Fatal]
  - Haemoglobin decreased [Unknown]
  - Haematocrit decreased [Unknown]
  - Mean cell volume increased [Unknown]
  - Off label use [Unknown]

NARRATIVE: CASE EVENT DATE: 20240509
